FAERS Safety Report 20985834 (Version 1)
Quarter: 2022Q2

REPORT INFORMATION
  Report Type: Spontaneous
  Country: US (occurrence: None)
  Receive Date: 20220617
  Receipt Date: 20220617
  Transmission Date: 20220721
  Serious: No
  Sender: FDA-Public Use
  Company Number: None

PATIENT
  Age: 62 Year
  Sex: Male
  Weight: 87.75 kg

DRUGS (7)
  1. PAXLOVID [Suspect]
     Active Substance: NIRMATRELVIR\RITONAVIR
     Indication: COVID-19
     Dosage: OTHER QUANTITY : 30 TABLET(S);?FREQUENCY : TWICE A DAY;?
     Route: 048
     Dates: start: 20220616
  2. LOSARTAN [Concomitant]
     Active Substance: LOSARTAN
  3. Panaprozole [Concomitant]
  4. CLARITIN [Concomitant]
     Active Substance: LORATADINE
  5. FIBER [Concomitant]
     Active Substance: PSYLLIUM HUSK
  6. MAGNESIUM [Concomitant]
     Active Substance: MAGNESIUM
  7. PROBIOTICS NOS [Concomitant]
     Active Substance: PROBIOTICS NOS

REACTIONS (2)
  - Diarrhoea [None]
  - Dysgeusia [None]

NARRATIVE: CASE EVENT DATE: 20220617
